FAERS Safety Report 8187270 (Version 4)
Quarter: 2014Q1

REPORT INFORMATION
  Report Type: Spontaneous
  Country: US (occurrence: US)
  Receive Date: 20111018
  Receipt Date: 20140320
  Transmission Date: 20141002
  Serious: No
  Sender: FDA-Public Use
  Company Number: US-ASTRAZENECA-2011SE36449

PATIENT
  Age: 91 Year
  Sex: Female

DRUGS (3)
  1. SYMBICORT PMDI [Suspect]
     Dosage: 2 PUFFS UNKNOWN
     Route: 055
     Dates: end: 201308
  2. SYMBICORT PMDI [Suspect]
     Dosage: 1 PUFF, DAILY
     Route: 055
     Dates: start: 201308
  3. BRILINTA [Suspect]
     Route: 048

REACTIONS (6)
  - Dyspnoea [Unknown]
  - Cardiac disorder [Unknown]
  - Malaise [Unknown]
  - Off label use [Unknown]
  - Drug dose omission [Unknown]
  - Intentional drug misuse [Unknown]
